FAERS Safety Report 8736890 (Version 3)
Quarter: 2013Q3

REPORT INFORMATION
  Report Type: Spontaneous
  Country: JP (occurrence: JP)
  Receive Date: 20120822
  Receipt Date: 20130927
  Transmission Date: 20140515
  Serious: Yes (Life-Threatening, Hospitalization, Other)
  Sender: FDA-Public Use
  Company Number: JP-PFIZER INC-2012141559

PATIENT
  Age: 87 Year
  Sex: Female
  Weight: 42.4 kg

DRUGS (4)
  1. ZITHROMAC [Suspect]
     Indication: RESPIRATORY TRACT INFECTION
     Dosage: 500 MG, 1X/DAY
     Route: 041
     Dates: start: 20120604, end: 20120608
  2. ZITHROMAC [Suspect]
     Indication: PNEUMONIA
  3. OMEGACIN [Suspect]
     Indication: PNEUMONIA
     Dosage: 600 MG DAILY
     Dates: start: 20120604, end: 20120610
  4. BIAPENEM [Concomitant]
     Indication: PNEUMONIA
     Dosage: 600 MG/DAY

REACTIONS (2)
  - Long QT syndrome [Recovering/Resolving]
  - Stress cardiomyopathy [Recovered/Resolved]
